FAERS Safety Report 13004845 (Version 1)
Quarter: 2016Q4

REPORT INFORMATION
  Report Type: Spontaneous
  Country: DK (occurrence: DK)
  Receive Date: 20161207
  Receipt Date: 20161207
  Transmission Date: 20170207
  Serious: Yes (Hospitalization)
  Sender: FDA-Public Use
  Company Number: DK-AUROBINDO-AUR-APL-2016-15209

PATIENT
  Age: 96 Year
  Sex: Female

DRUGS (1)
  1. GABAPENTIN AUROBINDO 300MG CAPSULES [Suspect]
     Active Substance: GABAPENTIN
     Indication: PAIN IN EXTREMITY
     Dosage: 300 MG, ONCE A DAY
     Route: 048
     Dates: start: 20161104, end: 20161112

REACTIONS (1)
  - Diarrhoea [Recovered/Resolved]

NARRATIVE: CASE EVENT DATE: 20161105
